FAERS Safety Report 8306270-1 (Version None)
Quarter: 2012Q2

REPORT INFORMATION
  Report Type: 
  Country: None (occurrence: None)
  Receive Date: 20120423
  Receipt Date: 20120417
  Transmission Date: 20120825
  Serious: Yes (Other)
  Sender: FDA-Public Use
  Company Number: FR-PFIZER INC-2011240805

PATIENT
  Age: 87 Year
  Sex: Female

DRUGS (14)
  1. FERROUS SULFATE TAB [Concomitant]
     Dosage: 80 MG, 1X/DAY
  2. LOVENOX [Concomitant]
     Dosage: 0.4 ML, 1X/DAY
  3. DEXERYL ^PASCUAL^ [Concomitant]
     Dosage: ONCE A DAY
  4. MORPHINE SULFATE [Concomitant]
     Dosage: 1 DF, 6 TIMES A DAY AS NEEDED
  5. VANCOMYCIN [Concomitant]
     Dosage: UNK
     Dates: start: 20090921, end: 20091010
  6. CETORNAN [Concomitant]
     Dosage: 1 DF, 2X/DAY
  7. NEXIUM [Concomitant]
     Dosage: 20 MG, 1X/DAY
  8. CLINDAMYCIN HCL [Suspect]
     Indication: STAPHYLOCOCCAL INFECTION
     Dosage: 900 MG, 2X/DAY
     Dates: start: 20091010, end: 20091106
  9. ASPIRIN [Concomitant]
     Dosage: 75 MG, 1X/DAY
  10. GENTAMICIN [Concomitant]
     Dosage: UNK
     Dates: start: 20090921, end: 20091010
  11. ACETAMINOPHEN [Concomitant]
     Dosage: 2 DF, 3X/DAY
  12. ZOPICLONE [Concomitant]
     Dosage: 7.5 MG, 1X/DAY, AS NEEDED
  13. PREDNISONE TAB [Concomitant]
     Indication: RHEUMATOID ARTHRITIS
     Dosage: 0.5 DF, 2X/DAY
  14. POLYETHYLENE GLYCOL [Concomitant]
     Dosage: 2 DF, 2X/DAY

REACTIONS (3)
  - TOXIC SKIN ERUPTION [None]
  - SKIN CANDIDA [None]
  - EOSINOPHILIA [None]
